FAERS Safety Report 7229628-0 (Version None)
Quarter: 2011Q1

REPORT INFORMATION
  Report Type: 
  Country: None (occurrence: None)
  Receive Date: 20110117
  Receipt Date: 20110104
  Transmission Date: 20110831
  Serious: Yes (Other)
  Sender: FDA-Public Use
  Company Number: PHHY2011US01590

PATIENT
  Age: 67 Year
  Sex: Female

DRUGS (1)
  1. RECLAST [Suspect]
     Dosage: 5 MG PER YEAR
     Route: 042
     Dates: start: 20090101

REACTIONS (2)
  - SEASONAL ALLERGY [None]
  - SKIN DISCOLOURATION [None]
